APPROVED DRUG PRODUCT: MECLIZINE HYDROCHLORIDE
Active Ingredient: MECLIZINE HYDROCHLORIDE
Strength: 25MG
Dosage Form/Route: TABLET;ORAL
Application: A200294 | Product #002 | TE Code: AA
Applicant: EPIC PHARMA LLC
Approved: Apr 13, 2012 | RLD: No | RS: No | Type: RX